FAERS Safety Report 14951994 (Version 1)
Quarter: 2018Q2

REPORT INFORMATION
  Report Type: Spontaneous
  Country: JP (occurrence: JP)
  Receive Date: 20180530
  Receipt Date: 20180530
  Transmission Date: 20180711
  Serious: Yes (Other)
  Sender: FDA-Public Use
  Company Number: JP-PFIZER INC-2018215390

PATIENT
  Age: 71 Year
  Sex: Male

DRUGS (1)
  1. VFEND [Suspect]
     Active Substance: VORICONAZOLE
     Indication: ASPERGILLUS INFECTION

REACTIONS (4)
  - Cardiac failure [Unknown]
  - Liver disorder [Unknown]
  - Chest X-ray abnormal [Unknown]
  - Drug level increased [Unknown]
